FAERS Safety Report 5215396-0 (Version None)
Quarter: 2007Q1

REPORT INFORMATION
  Report Type: 
  Country: None (occurrence: None)
  Receive Date: 20070116
  Receipt Date: 20070108
  Transmission Date: 20070707
  Serious: Yes (Life-Threatening)
  Sender: FDA-Public Use
  Company Number: 2007-152726-NL

PATIENT
  Age: 77 Year
  Sex: Female

DRUGS (9)
  1. MIRTAZAPINE [Suspect]
     Indication: DEPRESSION
     Dosage: 30 MG ORAL
     Route: 048
     Dates: start: 20060830, end: 20061120
  2. CITALOPRAM HYDROBROMIDE [Suspect]
     Indication: DEPRESSION
     Dosage: 40 MG ORAL
     Route: 048
     Dates: end: 20061120
  3. OLANZAPINE [Suspect]
     Indication: SCHIZOPHRENIA
     Dosage: 12.5 MG/DF ORAL
     Route: 048
     Dates: start: 20060912, end: 20060913
  4. OLANZAPINE [Suspect]
     Indication: SCHIZOPHRENIA
     Dosage: 12.5 MG/DF ORAL
     Route: 048
     Dates: start: 20060926, end: 20061124
  5. ALENDRONIC ACID [Concomitant]
  6. BENDROFLUMETHIAZIDE [Concomitant]
  7. MOVICOL [Concomitant]
  8. SOFRADEX [Concomitant]
  9. ZOPICLONE [Concomitant]

REACTIONS (8)
  - BRADYCARDIA [None]
  - BUNDLE BRANCH BLOCK RIGHT [None]
  - CARDIAC ARREST [None]
  - ELECTROCARDIOGRAM QT PROLONGED [None]
  - ELECTROMECHANICAL DISSOCIATION [None]
  - LOSS OF CONSCIOUSNESS [None]
  - SYNCOPE [None]
  - VENTRICULAR TACHYCARDIA [None]
